FAERS Safety Report 12119674 (Version 1)
Quarter: 2016Q1

REPORT INFORMATION
  Report Type: Spontaneous
  Country: SE (occurrence: SE)
  Receive Date: 20160226
  Receipt Date: 20160226
  Transmission Date: 20160526
  Serious: Yes (Life-Threatening)
  Sender: FDA-Public Use
  Company Number: SE-NOVOPROD-481047

PATIENT
  Age: 66 Year
  Sex: Male

DRUGS (9)
  1. VICTOZA [Suspect]
     Active Substance: LIRAGLUTIDE
     Indication: DIABETES MELLITUS
     Dosage: 1.8 MG, QD
     Route: 058
     Dates: start: 20120206
  2. DOXAZOSIN [Concomitant]
     Active Substance: DOXAZOSIN\DOXAZOSIN MESYLATE
  3. AMLODIPINE [Concomitant]
     Active Substance: AMLODIPINE BESYLATE
  4. HUMULIN N [Concomitant]
     Active Substance: INSULIN HUMAN
     Dosage: 100 IE/ML
     Route: 058
  5. ATORVASTATIN [Concomitant]
     Active Substance: ATORVASTATIN
  6. ENALAPRIL COMP [Concomitant]
     Active Substance: ENALAPRIL MALEATE\HYDROCHLOROTHIAZIDE
  7. MINDIAB [Concomitant]
     Active Substance: GLIPIZIDE
     Dosage: 2.5 MG, UNK
     Route: 048
  8. TROMBYL [Concomitant]
     Active Substance: ASPIRIN
     Dosage: 75 MG, UNK
     Route: 048
  9. FUROSEMIDE. [Concomitant]
     Active Substance: FUROSEMIDE
     Dosage: 60 MG, UNK
     Route: 048

REACTIONS (1)
  - Pancreatic carcinoma [Not Recovered/Not Resolved]

NARRATIVE: CASE EVENT DATE: 201512
